FAERS Safety Report 5796149-1 (Version None)
Quarter: 2008Q3

REPORT INFORMATION
  Report Type: 
  Country: None (occurrence: None)
  Receive Date: 20080701
  Receipt Date: 20080630
  Transmission Date: 20090109
  Serious: Yes (Life-Threatening, Hospitalization)
  Sender: FDA-Public Use
  Company Number: FR-BRISTOL-MYERS SQUIBB COMPANY-14181903

PATIENT
  Age: 23 Year
  Sex: Male
  Weight: 95 kg

DRUGS (8)
  1. ABILIFY [Suspect]
     Indication: PSYCHOTIC DISORDER
     Route: 048
  2. METHADON HCL TAB [Suspect]
     Indication: DRUG WITHDRAWAL SYNDROME
     Route: 048
  3. BENZODIAZEPINE [Suspect]
  4. ATARAX [Suspect]
  5. LYSANXIA [Suspect]
     Indication: ANXIETY
     Route: 048
  6. SUBUTEX [Concomitant]
  7. ANAFRANIL [Concomitant]
  8. XANAX [Concomitant]

REACTIONS (4)
  - COMA [None]
  - DRUG TOXICITY [None]
  - DYSPNOEA [None]
  - SUICIDE ATTEMPT [None]
